FAERS Safety Report 19889465 (Version 8)
Quarter: 2022Q2

REPORT INFORMATION
  Report Type: Spontaneous
  Country: DE (occurrence: DE)
  Receive Date: 20210928
  Receipt Date: 20220509
  Transmission Date: 20220721
  Serious: Yes (Hospitalization, Other)
  Sender: FDA-Public Use
  Company Number: DE-SA-SAC20210924000632

PATIENT
  Age: 57 Year
  Sex: Female
  Weight: 105 kg

DRUGS (8)
  1. DUPIXENT [Suspect]
     Active Substance: DUPILUMAB
     Indication: Dermatitis atopic
     Dosage: 300 MG, QOW
     Route: 058
     Dates: start: 20181120
  2. FLUTICASONE PROPIONATE\FORMOTEROL FUMARATE [Concomitant]
     Active Substance: FLUTICASONE PROPIONATE\FORMOTEROL FUMARATE
     Indication: Asthma
     Dosage: 2 DF, BID
     Route: 055
     Dates: start: 2018
  3. FLUTICASONE PROPIONATE\FORMOTEROL FUMARATE [Concomitant]
     Active Substance: FLUTICASONE PROPIONATE\FORMOTEROL FUMARATE
     Dosage: 250 MG
     Route: 048
     Dates: start: 2018
  4. MONTELUKAST [Concomitant]
     Active Substance: MONTELUKAST SODIUM
     Indication: Asthma
     Dosage: 10 MG, QD
     Route: 048
     Dates: start: 2018
  5. CANDESARTAN [Concomitant]
     Active Substance: CANDESARTAN
     Indication: Hypertension
     Dosage: 4 MG, QD
     Route: 048
     Dates: start: 2018
  6. HYGROTON [Concomitant]
     Active Substance: CHLORTHALIDONE
     Indication: Hypertension
     Dosage: 25 MG, QD
     Route: 048
     Dates: start: 2018
  7. PANTOPRAZOLE [Concomitant]
     Active Substance: PANTOPRAZOLE
     Indication: Prophylaxis
     Dosage: 49 MG, QD
     Route: 048
     Dates: start: 20210706
  8. PANTOPRAZOLE [Concomitant]
     Active Substance: PANTOPRAZOLE
     Dosage: 40 MG
     Route: 048
     Dates: start: 2018

REACTIONS (11)
  - Traumatic ulcer [Not Recovered/Not Resolved]
  - Unevaluable event [Not Recovered/Not Resolved]
  - Erysipelas [Recovered/Resolved]
  - Chills [Recovered/Resolved]
  - Pyrexia [Recovered/Resolved]
  - Ulcer [Recovered/Resolved]
  - Scar [Recovered/Resolved]
  - Fall [Recovered/Resolved with Sequelae]
  - Haematoma [Unknown]
  - Wound [Unknown]
  - Skin graft [Recovered/Resolved]

NARRATIVE: CASE EVENT DATE: 20210501
